FAERS Safety Report 4783703-9 (Version None)
Quarter: 2005Q3

REPORT INFORMATION
  Report Type: 
  Country: None (occurrence: None)
  Receive Date: 20050928
  Receipt Date: 20050915
  Transmission Date: 20060218
  Serious: Yes (Hospitalization)
  Sender: FDA-Public Use
  Company Number: 2005130274

PATIENT
  Age: 36 Year
  Sex: Female

DRUGS (6)
  1. NEURONTIN [Suspect]
     Indication: ILL-DEFINED DISORDER
     Dates: start: 20041001
  2. CERAZETTE (DESOGESTREL) [Suspect]
     Indication: ILL-DEFINED DISORDER
     Dates: start: 20000101, end: 20050101
  3. ZOLOFT [Concomitant]
  4. ALVEDON (PARACETAMOL [Concomitant]
  5. TRYPTIZOL (AMITRIPTYLINE HYDROCHLORIDE [Concomitant]
  6. ASPIRIN [Concomitant]

REACTIONS (5)
  - CAROTID ARTERY DISSECTION [None]
  - CEREBROVASCULAR ACCIDENT [None]
  - DRUG EXPOSURE DURING PREGNANCY [None]
  - DRUG INTERACTION [None]
  - PREGNANCY [None]
